FAERS Safety Report 13911641 (Version 1)
Quarter: 2017Q3

REPORT INFORMATION
  Report Type: Spontaneous
  Country: US (occurrence: US)
  Receive Date: 20170828
  Receipt Date: 20170828
  Transmission Date: 20171127
  Serious: No
  Sender: FDA-Public Use
  Company Number: US-ROCHE-GNE092779

PATIENT
  Age: 10 Year
  Sex: Female
  Weight: 53.1 kg

DRUGS (2)
  1. NUTROPIN AQ [Suspect]
     Active Substance: SOMATROPIN
     Indication: HYPOPITUITARISM
     Dosage: 0.22MG/KG/WK
     Route: 058
     Dates: start: 199901
  2. NUTROPIN AQ [Suspect]
     Active Substance: SOMATROPIN
     Indication: OPTIC GLIOMA

REACTIONS (1)
  - Headache [Recovered/Resolved]

NARRATIVE: CASE EVENT DATE: 199901
